FAERS Safety Report 9526056 (Version 1)
Quarter: 2013Q1

REPORT INFORMATION
  Report Type: Spontaneous
  Country: US (occurrence: None)
  Receive Date: 20130314
  Receipt Date: 20130314
  Transmission Date: 20140127
  Serious: No
  Sender: FDA-Public Use
  Company Number: 1301USA004763

PATIENT
  Sex: Female

DRUGS (3)
  1. VICTRELIS [Suspect]
     Indication: HEPATITIS C
     Route: 048
  2. PEGINTRON [Suspect]
  3. RIBAVIRIN (RIBAVIRIN) CAPSULE [Suspect]

REACTIONS (5)
  - Weight increased [None]
  - Fluid retention [None]
  - Mouth ulceration [None]
  - Local swelling [None]
  - Drug dose omission [None]
